FAERS Safety Report 7846618-5 (Version None)
Quarter: 2011Q4

REPORT INFORMATION
  Report Type: 
  Country: None (occurrence: None)
  Receive Date: 20111025
  Receipt Date: 20111011
  Transmission Date: 20120403
  Serious: Yes (Hospitalization, Other)
  Sender: FDA-Public Use
  Company Number: PHHY2011JP27525

PATIENT
  Sex: Female
  Weight: 39 kg

DRUGS (10)
  1. PREDNISOLONE [Suspect]
     Indication: RENAL TRANSPLANT
     Dosage: 50 MG
     Route: 048
     Dates: start: 20081113
  2. SIMULECT [Suspect]
     Indication: RENAL TRANSPLANT
     Dosage: 20 MG
     Route: 042
     Dates: start: 20081112, end: 20081112
  3. SIMULECT [Suspect]
     Dosage: 20 MG
     Route: 042
     Dates: start: 20081116, end: 20081116
  4. NEORAL [Concomitant]
     Indication: RENAL TRANSPLANT
     Dosage: 250 MG
     Route: 048
     Dates: start: 20081109, end: 20081118
  5. SULFAMETHOXAZOLE [Concomitant]
     Indication: ANTIFUNGAL PROPHYLAXIS
     Dosage: 1 DF
     Route: 048
     Dates: start: 20081201, end: 20110119
  6. SANDIMMUNE [Concomitant]
     Indication: RENAL TRANSPLANT
     Dosage: 125 MG
     Route: 042
     Dates: start: 20081112, end: 20081113
  7. FAMOTIDINE [Concomitant]
     Indication: PROPHYLAXIS AGAINST GASTROINTESTINAL ULCER
     Dosage: 20 MG
     Route: 048
     Dates: start: 20081113
  8. MYCOPHENOLATE MOFETIL (CELLCEPT) [Suspect]
     Indication: RENAL TRANSPLANT
     Dosage: 1000 MG
     Route: 048
     Dates: start: 20081113
  9. PROGRAF [Suspect]
     Indication: RENAL TRANSPLANT
     Dosage: 4 MG
     Route: 048
     Dates: start: 20081119
  10. FUNGIZONE [Concomitant]
     Indication: ANTIFUNGAL PROPHYLAXIS
     Dosage: 200 MG
     Route: 048
     Dates: start: 20081109, end: 20110119

REACTIONS (4)
  - HAEMOLYTIC ANAEMIA [None]
  - PYREXIA [None]
  - HEPATIC FUNCTION ABNORMAL [None]
  - CYTOMEGALOVIRUS INFECTION [None]
